FAERS Safety Report 23014336 (Version 3)
Quarter: 2023Q4

REPORT INFORMATION
  Report Type: Spontaneous
  Country: US (occurrence: US)
  Receive Date: 20231002
  Receipt Date: 20231024
  Transmission Date: 20240110
  Serious: No
  Sender: FDA-Public Use
  Company Number: US-SANOFI-01775618

PATIENT
  Age: 62 Year
  Sex: Male

DRUGS (2)
  1. LANTUS [Suspect]
     Active Substance: INSULIN GLARGINE
     Indication: Type 1 diabetes mellitus
     Dosage: 16 IU, QD
     Route: 058
     Dates: start: 202206
  2. HUMALOG [Concomitant]
     Active Substance: INSULIN LISPRO
     Dosage: EVERY 3 HOURS

REACTIONS (3)
  - Blood glucose decreased [Recovered/Resolved]
  - Therapeutic response shortened [Unknown]
  - Wrong technique in product usage process [Unknown]
